FAERS Safety Report 15602292 (Version 1)
Quarter: 2018Q4

REPORT INFORMATION
  Report Type: Spontaneous
  Country: US (occurrence: US)
  Receive Date: 20181109
  Receipt Date: 20181109
  Transmission Date: 20190205
  Serious: Yes (Other)
  Sender: FDA-Public Use
  Company Number: US-PFIZER INC-2018458343

PATIENT
  Age: 23 Year
  Sex: Male

DRUGS (1)
  1. NALOXONE HCL [Suspect]
     Active Substance: NALOXONE HYDROCHLORIDE
     Indication: TOXICITY TO VARIOUS AGENTS
     Dosage: 19 MG, UNK (RECEIVED REPEATED DOSES OF 1-2MG)
     Route: 042

REACTIONS (3)
  - Cardiogenic shock [Recovered/Resolved]
  - Cardiopulmonary failure [Recovered/Resolved]
  - Pulmonary oedema [Recovered/Resolved]
